FAERS Safety Report 8570712-7 (Version None)
Quarter: 2012Q3

REPORT INFORMATION
  Report Type: 
  Country: None (occurrence: None)
  Receive Date: 20120805
  Receipt Date: 20120607
  Transmission Date: 20120928
  Serious: No
  Sender: FDA-Public Use
  Company Number: US-009507513-2012SP032315

PATIENT

DRUGS (3)
  1. CORTICOSTEROIDS (UNSPECIFIED) [Concomitant]
     Indication: RHINITIS ALLERGIC
     Dosage: UNK UNK, UNKNOWN
  2. CLARITIN-D [Suspect]
     Indication: RHINITIS ALLERGIC
     Dosage: 5 MG, Q12H
     Route: 048
     Dates: start: 20100101, end: 20120101
  3. CLARITIN-D [Suspect]
     Indication: MEDICAL OBSERVATION

REACTIONS (2)
  - EXPIRED DRUG ADMINISTERED [None]
  - DRUG INEFFECTIVE [None]
